FAERS Safety Report 9331743 (Version 1)
Quarter: 2013Q2

REPORT INFORMATION
  Report Type: Spontaneous
  Country: FR (occurrence: FR)
  Receive Date: 20130605
  Receipt Date: 20130605
  Transmission Date: 20140414
  Serious: Yes (Hospitalization)
  Sender: FDA-Public Use
  Company Number: FR-ELI_LILLY_AND_COMPANY-FR201305008103

PATIENT
  Age: 68 Year
  Sex: Female

DRUGS (23)
  1. ALIMTA [Suspect]
     Dosage: 845 MG, OTHER
     Route: 042
     Dates: start: 20121015
  2. ALIMTA [Suspect]
     Dosage: 845 MG, OTHER
     Dates: start: 20121105
  3. ALIMTA [Suspect]
     Dosage: 845 MG, OTHER
     Route: 042
     Dates: start: 20121128
  4. ALIMTA [Suspect]
     Dosage: 845 MG, OTHER
     Route: 042
     Dates: start: 20121228
  5. CISPLATIN [Concomitant]
     Dosage: 120 MG, OTHER
     Route: 042
     Dates: start: 20121015
  6. CISPLATIN [Concomitant]
     Dosage: 120 MG, OTHER
     Route: 042
     Dates: start: 20121105
  7. CISPLATIN [Concomitant]
     Dosage: 120 MG, OTHER
     Route: 042
     Dates: start: 20121128
  8. CISPLATIN [Concomitant]
     Dosage: 120 MG, OTHER
     Route: 042
     Dates: start: 20121228
  9. EMEND [Concomitant]
     Dosage: UNK
     Route: 048
     Dates: start: 20121228
  10. PRIMPERAN [Concomitant]
     Dosage: UNK
     Route: 048
     Dates: start: 20121228
  11. CHONDROSULF [Concomitant]
  12. TIMOLOL [Concomitant]
     Route: 047
  13. FOLIC ACID [Concomitant]
     Dosage: 0.4 MG, QD
     Dates: start: 20121009
  14. ZOPHREN [Concomitant]
     Dosage: 8 MG, OTHER
  15. XANAX [Concomitant]
     Dosage: 0.25 MG, OTHER
  16. SOLUPRED [Concomitant]
  17. SOLUMEDROL [Concomitant]
     Dosage: 80 MG, OTHER
  18. CELESTENE [Concomitant]
  19. VITAMIN B12 [Concomitant]
  20. VOGALENE [Concomitant]
     Dosage: UNK
     Dates: end: 20121228
  21. FORLAX [Concomitant]
  22. HALDOL [Concomitant]
  23. MOPRAL [Concomitant]

REACTIONS (2)
  - Visual acuity reduced [Recovered/Resolved]
  - Headache [Recovered/Resolved]
